FAERS Safety Report 14365276 (Version 2)
Quarter: 2018Q1

REPORT INFORMATION
  Report Type: Report from Study
  Country: GB (occurrence: GB)
  Receive Date: 20180108
  Receipt Date: 20180209
  Transmission Date: 20180509
  Serious: Yes (Hospitalization, Other)
  Sender: FDA-Public Use
  Company Number: GB-BAUSCH-BL-2017-036216

PATIENT
  Age: 76 Year
  Sex: Female
  Weight: 69.9 kg

DRUGS (21)
  1. DEXAMETHASONE. [Suspect]
     Active Substance: DEXAMETHASONE
     Dates: start: 20171115
  2. DEXAMETHASONE. [Suspect]
     Active Substance: DEXAMETHASONE
     Dates: start: 20170712
  3. IMNOVID [Suspect]
     Active Substance: POMALIDOMIDE
     Dosage: PER MONTH
     Route: 048
     Dates: start: 20170322, end: 20170411
  4. DEXAMETHASONE. [Suspect]
     Active Substance: DEXAMETHASONE
     Indication: PLASMA CELL MYELOMA
     Route: 065
  5. DEXAMETHASONE. [Suspect]
     Active Substance: DEXAMETHASONE
     Route: 065
     Dates: start: 20170322, end: 20170411
  6. DEXAMETHASONE. [Suspect]
     Active Substance: DEXAMETHASONE
     Dates: start: 20171101
  7. IMNOVID [Suspect]
     Active Substance: POMALIDOMIDE
     Dosage: PER MONTH
     Route: 048
  8. OMEPRAZOLE. [Concomitant]
     Active Substance: OMEPRAZOLE
     Indication: PRODUCT USED FOR UNKNOWN INDICATION
  9. DEXAMETHASONE. [Suspect]
     Active Substance: DEXAMETHASONE
     Route: 065
  10. DEXAMETHASONE. [Suspect]
     Active Substance: DEXAMETHASONE
     Dates: start: 20170802
  11. IMNOVID [Suspect]
     Active Substance: POMALIDOMIDE
     Indication: PLASMA CELL MYELOMA
     Route: 065
     Dates: start: 20170322, end: 20170411
  12. AMLODIPINE [Concomitant]
     Active Substance: AMLODIPINE BESYLATE
     Indication: PRODUCT USED FOR UNKNOWN INDICATION
  13. PARACETAMOL [Concomitant]
     Active Substance: ACETAMINOPHEN
     Indication: PRODUCT USED FOR UNKNOWN INDICATION
     Route: 065
  14. DEXAMETHASONE. [Suspect]
     Active Substance: DEXAMETHASONE
     Dates: start: 20170906
  15. DEXAMETHASONE. [Suspect]
     Active Substance: DEXAMETHASONE
     Dates: start: 20171122
  16. DEXAMETHASONE. [Suspect]
     Active Substance: DEXAMETHASONE
     Route: 065
     Dates: start: 20170614, end: 20170705
  17. DEXAMETHASONE. [Suspect]
     Active Substance: DEXAMETHASONE
     Dates: start: 20170809
  18. DEXAMETHASONE. [Suspect]
     Active Substance: DEXAMETHASONE
     Dates: start: 20170830
  19. DEXAMETHASONE. [Suspect]
     Active Substance: DEXAMETHASONE
     Dates: start: 20171108
  20. SODIUM CLODRONATE [Concomitant]
     Active Substance: CLODRONIC ACID
     Indication: PRODUCT USED FOR UNKNOWN INDICATION
  21. ASPIRIN. [Concomitant]
     Active Substance: ASPIRIN
     Indication: PRODUCT USED FOR UNKNOWN INDICATION
     Route: 065

REACTIONS (9)
  - Anaemia [Not Recovered/Not Resolved]
  - Neutropenia [Recovered/Resolved]
  - Thrombocytopenia [Recovered/Resolved]
  - Lung infection [Recovered/Resolved]
  - Lower respiratory tract infection [Not Recovered/Not Resolved]
  - Fatigue [Not Recovered/Not Resolved]
  - Nausea [Recovered/Resolved]
  - Diarrhoea [Not Recovered/Not Resolved]
  - Leukopenia [Recovered/Resolved]

NARRATIVE: CASE EVENT DATE: 20170403
